FAERS Safety Report 24557291 (Version 1)
Quarter: 2024Q4

REPORT INFORMATION
  Report Type: Spontaneous
  Country: FR (occurrence: FR)
  Receive Date: 20241028
  Receipt Date: 20241028
  Transmission Date: 20250115
  Serious: Yes (Death, Hospitalization)
  Sender: MYLAN
  Company Number: FR-002147023-NVSC2021FR081826

PATIENT
  Age: 19 Year
  Sex: Female
  Weight: 55 kg

DRUGS (14)
  1. BUSULFAN [Suspect]
     Active Substance: BUSULFAN
     Indication: Product used for unknown indication
     Dosage: 195 MILLIGRAM
     Route: 042
     Dates: start: 20191002, end: 20191005
  2. METHOTREXATE [Suspect]
     Active Substance: METHOTREXATE
     Indication: Product used for unknown indication
     Dosage: 25.25 MILLIGRAM
     Route: 042
     Dates: start: 20191009, end: 20191009
  3. METHOTREXATE [Suspect]
     Active Substance: METHOTREXATE
     Dosage: 17 MILLIGRAM
     Route: 042
     Dates: start: 20191011, end: 20191011
  4. METHOTREXATE [Suspect]
     Active Substance: METHOTREXATE
     Dosage: 17 MILLIGRAM
     Route: 042
     Dates: start: 20191014, end: 20191014
  5. NEORAL [Suspect]
     Active Substance: CYCLOSPORINE
     Indication: Product used for unknown indication
     Dosage: 30 MILLIGRAM
     Route: 042
     Dates: start: 20191007, end: 20191028
  6. NEORAL [Suspect]
     Active Substance: CYCLOSPORINE
     Indication: Product used for unknown indication
     Dosage: 120 MILLIGRAM
     Route: 048
     Dates: start: 20191029, end: 20191121
  7. FLUDARABINE [Suspect]
     Active Substance: FLUDARABINE PHOSPHATE
     Indication: Product used for unknown indication
     Dosage: 50.75 MILLIGRAM
     Route: 042
     Dates: start: 20191002, end: 20191006
  8. ATOVAQUONE [Concomitant]
     Active Substance: ATOVAQUONE
     Indication: Product used for unknown indication
     Dosage: 750 MILLIGRAM, BID (IN THE MORNING AND EVENING)
     Route: 065
  9. PENICILLIN V [Concomitant]
     Active Substance: PENICILLIN V
     Indication: Product used for unknown indication
     Dosage: 1 DOSAGE FORM, BID, 1 TABLET AT 8AM, 1 TABLET AT 8PM
     Route: 065
  10. VALACYCLOVIR HYDROCHLORIDE [Concomitant]
     Active Substance: VALACYCLOVIR HYDROCHLORIDE
     Indication: Product used for unknown indication
     Dosage: 500 MILLIGRAM, BID
     Route: 065
  11. PANTOPRAZOLE [Concomitant]
     Active Substance: PANTOPRAZOLE
     Indication: Product used for unknown indication
     Dosage: 20 MILLIGRAM, QD, IN THE EVENING
     Route: 065
  12. NOMEGESTROL [Concomitant]
     Active Substance: NOMEGESTROL
     Indication: Product used for unknown indication
     Dosage: 2 DOSAGE FORM, QD, IN THE EVENING
     Route: 065
  13. CHLORHEXIDINE GLUCONATE [Concomitant]
     Active Substance: CHLORHEXIDINE GLUCONATE
     Indication: Product used for unknown indication
     Dosage: 1 DOSAGE FORM, MOUTHWASH SOLUTION
     Route: 065
  14. SODIUM BICARBONATE [Concomitant]
     Active Substance: SODIUM BICARBONATE
     Indication: Product used for unknown indication
     Dosage: 250 MILLILITER, TID, ONE MOUTHWASH SOLUTION IN THE MORNING, NOON AND EVENING
     Route: 065

REACTIONS (1)
  - Acute myeloid leukaemia [Fatal]

NARRATIVE: CASE EVENT DATE: 20191122
